FAERS Safety Report 9232082 (Version 1)
Quarter: 2013Q2

REPORT INFORMATION
  Report Type: Spontaneous
  Country: US (occurrence: US)
  Receive Date: 20130415
  Receipt Date: 20130415
  Transmission Date: 20140414
  Serious: No
  Sender: FDA-Public Use
  Company Number: US-PFIZER INC-2013114079

PATIENT
  Age: 31 Year
  Sex: Female
  Weight: 46 kg

DRUGS (2)
  1. LEVOXYL [Suspect]
     Indication: AUTOIMMUNE THYROIDITIS
     Dosage: 25 UG, 3X/DAY
     Route: 048
     Dates: start: 2007
  2. TRIIODOTHYRONINE [Concomitant]
     Indication: AUTOIMMUNE THYROIDITIS
     Dosage: UNK

REACTIONS (4)
  - Hypersensitivity [Unknown]
  - Product quality issue [Unknown]
  - Malaise [Unknown]
  - Drug ineffective [Unknown]
